FAERS Safety Report 7770881-2 (Version None)
Quarter: 2011Q3

REPORT INFORMATION
  Report Type: 
  Country: None (occurrence: None)
  Receive Date: 20110922
  Receipt Date: 20100802
  Transmission Date: 20111222
  Serious: Yes (Hospitalization)
  Sender: FDA-Public Use
  Company Number: US-ASTRAZENECA-2007UW06151

PATIENT
  Age: 12465 Day
  Sex: Male
  Weight: 74.8 kg

DRUGS (8)
  1. ZYPREXA [Concomitant]
     Dosage: 10-15 MG
     Dates: start: 20031230, end: 20040115
  2. ZYPREXA [Concomitant]
     Dates: start: 20040805, end: 20041027
  3. ZYPREXA [Concomitant]
     Dates: start: 20050214
  4. SEROQUEL [Suspect]
     Indication: BIPOLAR DISORDER
     Dosage: 100-600 MG
     Route: 048
     Dates: start: 20050422, end: 20050929
  5. EFFEXOR [Concomitant]
     Route: 048
     Dates: start: 20041022
  6. SEROQUEL [Suspect]
     Dosage: 100-200 MG
     Route: 048
  7. TRAZODONE HCL [Concomitant]
     Indication: SLEEP DISORDER
     Dates: start: 20040422
  8. ZYPREXA [Concomitant]
     Indication: BIPOLAR DISORDER
     Dates: start: 20020101, end: 20041002

REACTIONS (3)
  - BACK PAIN [None]
  - PANCREATITIS ACUTE [None]
  - PANCREATITIS [None]
